FAERS Safety Report 26066848 (Version 2)
Quarter: 2025Q4

REPORT INFORMATION
  Report Type: Spontaneous
  Country: CN (occurrence: CN)
  Receive Date: 20251119
  Receipt Date: 20251201
  Transmission Date: 20260119
  Serious: Yes (Hospitalization, Other)
  Sender: NOVO NORDISK
  Company Number: CN-NOVOPROD-1562399

PATIENT
  Age: 75 Year
  Sex: Female

DRUGS (4)
  1. NOVOLIN R [Suspect]
     Active Substance: INSULIN HUMAN
     Indication: Type 1 diabetes mellitus
     Dosage: 30?40 IU, TID
  2. NOVOLIN R [Suspect]
     Active Substance: INSULIN HUMAN
     Dosage: 50?60 IU, TID
  3. NOVOLIN R [Suspect]
     Active Substance: INSULIN HUMAN
     Dosage: 30 IU, QD
  4. METFORMIN [Concomitant]
     Active Substance: METFORMIN HYDROCHLORIDE
     Dosage: 0.25 MG TWICE DAILY, OR 0.5 MG ONCE DAILY

REACTIONS (1)
  - Cerebral infarction [Unknown]
